FAERS Safety Report 23398228 (Version 2)
Quarter: 2024Q1

REPORT INFORMATION
  Report Type: Spontaneous
  Country: US (occurrence: US)
  Receive Date: 20240112
  Receipt Date: 20240226
  Transmission Date: 20240410
  Serious: No
  Sender: FDA-Public Use
  Company Number: US-PFIZER INC-202400010567

PATIENT
  Age: 64 Year
  Sex: Male
  Weight: 119.75 kg

DRUGS (4)
  1. METOPROLOL TARTRATE [Suspect]
     Active Substance: METOPROLOL TARTRATE
     Indication: Heart rate irregular
     Dosage: 50 MG
  2. METOPROLOL TARTRATE [Suspect]
     Active Substance: METOPROLOL TARTRATE
     Dosage: 75 MG
  3. INSULIN NOS [Concomitant]
     Active Substance: INSULIN NOS
     Dosage: 70 IU
  4. INSULIN NOS [Concomitant]
     Active Substance: INSULIN NOS
     Dosage: 80 IU

REACTIONS (1)
  - Dizziness [Unknown]
